FAERS Safety Report 7704267-3 (Version None)
Quarter: 2011Q3

REPORT INFORMATION
  Report Type: 
  Country: None (occurrence: None)
  Receive Date: 20110823
  Receipt Date: 20110809
  Transmission Date: 20111222
  Serious: Yes (Other)
  Sender: FDA-Public Use
  Company Number: PHFR2011IE04741

PATIENT
  Age: 11 Year
  Sex: Male

DRUGS (2)
  1. RITALIN [Suspect]
     Dosage: 10 MG, DAILY
     Route: 048
     Dates: start: 20061204
  2. RITALIN [Suspect]
     Dosage: 20 MG, DAILY
     Route: 048
     Dates: start: 20061204

REACTIONS (1)
  - EPILEPSY [None]
